FAERS Safety Report 16704897 (Version 2)
Quarter: 2019Q3

REPORT INFORMATION
  Report Type: Spontaneous
  Country: US (occurrence: US)
  Receive Date: 20190814
  Receipt Date: 20190916
  Transmission Date: 20191004
  Serious: Yes (Other)
  Sender: FDA-Public Use
  Company Number: US-ALLERGAN-1931002US

PATIENT
  Sex: Female

DRUGS (4)
  1. BOTOX [Suspect]
     Active Substance: ONABOTULINUMTOXINA
     Indication: MUSCLE SPASTICITY
     Dosage: 600 UNITS, SINGLE
     Dates: start: 20190713, end: 20190713
  2. AMPYRA [Concomitant]
     Active Substance: DALFAMPRIDINE
     Dosage: UNK
  3. DANTROLENE. [Concomitant]
     Active Substance: DANTROLENE SODIUM
     Dosage: UNK
  4. BOTOX [Suspect]
     Active Substance: ONABOTULINUMTOXINA
     Indication: MULTIPLE SCLEROSIS
     Dosage: UNK UNK, SINGLE
     Route: 065
     Dates: start: 201904, end: 201904

REACTIONS (4)
  - Muscular weakness [Not Recovered/Not Resolved]
  - Overdose [Unknown]
  - Drug ineffective [Unknown]
  - Gait inability [Not Recovered/Not Resolved]

NARRATIVE: CASE EVENT DATE: 201904
